FAERS Safety Report 6726480-4 (Version None)
Quarter: 2010Q2

REPORT INFORMATION
  Report Type: 
  Country: None (occurrence: None)
  Receive Date: 20100514
  Receipt Date: 20100503
  Transmission Date: 20101027
  Serious: Yes (Hospitalization)
  Sender: FDA-Public Use
  Company Number: US-JNJFOC-20100502718

PATIENT
  Sex: Female

DRUGS (5)
  1. CHILDREN'S TYLENOL LIQUID BUBBLEGUM [Suspect]
  2. CHILDREN'S TYLENOL LIQUID BUBBLEGUM [Suspect]
     Indication: DRUG USE FOR UNKNOWN INDICATION
  3. CHILDREN'S MOTRIN [Suspect]
  4. CHILDREN'S MOTRIN [Suspect]
     Indication: DRUG USE FOR UNKNOWN INDICATION
  5. CHILDREN'S ZYRTEC ALLERGY [Suspect]
     Indication: DRUG USE FOR UNKNOWN INDICATION

REACTIONS (2)
  - BACTERIAL INFECTION [None]
  - PRODUCT QUALITY ISSUE [None]
